FAERS Safety Report 5804805-1 (Version None)
Quarter: 2008Q3

REPORT INFORMATION
  Report Type: 
  Country: None (occurrence: None)
  Receive Date: 20080709
  Receipt Date: 20080627
  Transmission Date: 20090109
  Serious: Yes (Hospitalization)
  Sender: FDA-Public Use
  Company Number: JP-PFIZER INC-2008054646

PATIENT
  Age: 60 Year
  Sex: Female

DRUGS (3)
  1. GABAPEN [Suspect]
     Indication: EPILEPSY
     Dosage: DAILY DOSE:2400MG
     Route: 048
     Dates: start: 20070801, end: 20080601
  2. TEGRETOL [Suspect]
     Route: 048
     Dates: start: 20070801, end: 20080101
  3. EXCEGRAN [Suspect]
     Route: 048
     Dates: start: 20070801, end: 20080101

REACTIONS (2)
  - ALOPECIA [None]
  - DERMATITIS EXFOLIATIVE [None]
